FAERS Safety Report 9062352 (Version 3)
Quarter: 2013Q2

REPORT INFORMATION
  Report Type: Spontaneous
  Country: CR (occurrence: CR)
  Receive Date: 20130213
  Receipt Date: 20130419
  Transmission Date: 20140414
  Serious: Yes (Hospitalization, Other)
  Sender: FDA-Public Use
  Company Number: CR-GLAXOSMITHKLINE-A1011732A

PATIENT
  Age: 62 Year
  Sex: Female

DRUGS (1)
  1. ARIXTRA [Suspect]
     Indication: FACE LIFT
     Dosage: 25MG UNKNOWN
     Route: 058

REACTIONS (5)
  - Haematoma [Recovered/Resolved]
  - Incision site haematoma [Recovered/Resolved]
  - Postoperative wound complication [Unknown]
  - Incisional drainage [Unknown]
  - Off label use [Unknown]
